FAERS Safety Report 5399708-3 (Version None)
Quarter: 2007Q3

REPORT INFORMATION
  Report Type: 
  Country: None (occurrence: None)
  Receive Date: 20070727
  Receipt Date: 20070719
  Transmission Date: 20080115
  Serious: Yes (Disabling, Other)
  Sender: FDA-Public Use
  Company Number: JP-MERCK-0706USA03561

PATIENT
  Age: 8 Year
  Sex: Female

DRUGS (1)
  1. FOSAMAX [Suspect]
     Indication: OSTEOGENESIS IMPERFECTA
     Route: 048
     Dates: start: 20030804, end: 20040201

REACTIONS (3)
  - OFF LABEL USE [None]
  - OSTEOMYELITIS [None]
  - OVERDOSE [None]
